FAERS Safety Report 25029005 (Version 2)
Quarter: 2025Q4

REPORT INFORMATION
  Report Type: Report from Study
  Country: CA (occurrence: CA)
  Receive Date: 20250303
  Receipt Date: 20251224
  Transmission Date: 20260118
  Serious: Yes (Other)
  Sender: Alvotech
  Company Number: CA-JAMP PHARMA CORPORATION-2024-JAM-CA-02076

PATIENT
  Age: 49 Year
  Sex: Female

DRUGS (2)
  1. SIMLANDI [Suspect]
     Active Substance: ADALIMUMAB-RYVK
     Indication: Myositis
     Dosage: 40 MG, EVERY 2 WEEKS
     Route: 058
     Dates: start: 20241119
  2. OZEMPIC [Concomitant]
     Active Substance: SEMAGLUTIDE
     Indication: Product used for unknown indication
     Dosage: UNK
     Route: 065

REACTIONS (4)
  - Skin cancer [Unknown]
  - Oral surgery [Unknown]
  - Gingivitis [Unknown]
  - Off label use [Unknown]

NARRATIVE: CASE EVENT DATE: 20250201
